FAERS Safety Report 23294849 (Version 1)
Quarter: 2023Q4

REPORT INFORMATION
  Report Type: Spontaneous
  Country: US (occurrence: US)
  Receive Date: 20231213
  Receipt Date: 20231213
  Transmission Date: 20240109
  Serious: No
  Sender: FDA-Public Use
  Company Number: US-BoehringerIngelheim-2023-BI-277990

PATIENT
  Age: 67 Year
  Sex: Female

DRUGS (8)
  1. SPIRIVA HANDIHALER [Suspect]
     Active Substance: TIOTROPIUM BROMIDE MONOHYDRATE
     Indication: Chronic obstructive pulmonary disease
     Dosage: DAILY DOSE: 18 MICROGRAM(S)
     Dates: start: 20231201
  2. ATORVASTATIN [Concomitant]
     Active Substance: ATORVASTATIN
     Indication: Hyperlipidaemia
     Dosage: 20MG DAILY
  3. ALBUTEROL [Concomitant]
     Active Substance: ALBUTEROL
     Indication: Chronic obstructive pulmonary disease
     Dosage: AS NEEDED
  4. RISEDRONATE SODIUM [Concomitant]
     Active Substance: RISEDRONATE SODIUM
     Indication: Osteoporosis
  5. ZOLMITRIPTAN [Concomitant]
     Active Substance: ZOLMITRIPTAN
     Indication: Migraine
  6. VITAMIN D [Concomitant]
     Active Substance: VITAMIN D NOS
     Indication: Vitamin supplementation
  7. VITAMINS [Concomitant]
     Active Substance: VITAMINS
     Indication: Vitamin supplementation
  8. CHONDROITIN SULFATE A\GLUCOSAMINE [Concomitant]
     Active Substance: CHONDROITIN SULFATE A\GLUCOSAMINE
     Indication: Osteoporosis

REACTIONS (1)
  - Diarrhoea [Not Recovered/Not Resolved]

NARRATIVE: CASE EVENT DATE: 20231202
